FAERS Safety Report 8597796-4 (Version None)
Quarter: 2012Q3

REPORT INFORMATION
  Report Type: 
  Country: None (occurrence: None)
  Receive Date: 20120816
  Receipt Date: 20120813
  Transmission Date: 20120928
  Serious: Yes (Life-Threatening, Hospitalization)
  Sender: FDA-Public Use
  Company Number: PHHY2012BR070285

PATIENT
  Sex: Female

DRUGS (4)
  1. FORMOTEROL FUMARATE [Suspect]
     Dosage: 1 DF, QD
  2. AVAMI [Concomitant]
     Indication: DYSPNOEA
     Dosage: 1 DF, QD
  3. FORMOTEROL FUMARATE [Suspect]
     Dosage: 1 DF, QW2
  4. FORMOTEROL FUMARATE [Suspect]
     Indication: ASTHMA
     Dosage: 1 DF, Q12H

REACTIONS (5)
  - PNEUMONIA [None]
  - APPARENT DEATH [None]
  - ASTHMA [None]
  - INCORRECT DOSE ADMINISTERED [None]
  - BRONCHITIS [None]
